FAERS Safety Report 25123362 (Version 1)
Quarter: 2025Q1

REPORT INFORMATION
  Report Type: Spontaneous
  Country: US (occurrence: US)
  Receive Date: 20250326
  Receipt Date: 20250326
  Transmission Date: 20250408
  Serious: No
  Sender: GRIFOLS
  Company Number: US-IGSA-BIG0032096

PATIENT
  Sex: Male
  Weight: 100 kg

DRUGS (11)
  1. PROLASTIN-C LIQUID [Suspect]
     Active Substance: .ALPHA.1-PROTEINASE INHIBITOR HUMAN
     Indication: Alpha-1 antitrypsin deficiency
     Dosage: 6360 MILLIGRAM, Q.WK.
     Route: 042
  2. LOSARTAN POTASSIUM [Concomitant]
     Active Substance: LOSARTAN POTASSIUM
  3. DIPHENHYDRAMINE HYDROCHLORIDE [Concomitant]
     Active Substance: DIPHENHYDRAMINE HYDROCHLORIDE
  4. EPINEPHRINE [Concomitant]
     Active Substance: EPINEPHRINE
  5. SODIUM CHLORIDE [Concomitant]
     Active Substance: SODIUM CHLORIDE
  6. ALBUTEROL SULFATE [Concomitant]
     Active Substance: ALBUTEROL SULFATE
  7. BREZTRI [Concomitant]
     Active Substance: BUDESONIDE\FORMOTEROL\GLYCOPYRROLATE
  8. ASPIRIN [Concomitant]
     Active Substance: ASPIRIN
  9. FOLIC ACID [Concomitant]
     Active Substance: FOLIC ACID
  10. PHENYTOIN SODIUM SOUTHWOOD [Concomitant]
  11. GUAIFENESIN [Concomitant]
     Active Substance: GUAIFENESIN

REACTIONS (2)
  - Blood glucose increased [Unknown]
  - Blood pressure increased [Unknown]
